FAERS Safety Report 11995591 (Version 1)
Quarter: 2016Q1

REPORT INFORMATION
  Report Type: Spontaneous
  Country: US (occurrence: US)
  Receive Date: 20160203
  Receipt Date: 20160203
  Transmission Date: 20160526
  Serious: Yes (Other)
  Sender: FDA-Public Use
  Company Number: US-AMNEAL PHARMACEUTICALS-2016AMN00060

PATIENT
  Sex: Female
  Weight: 88.89 kg

DRUGS (12)
  1. CORTISONE [Suspect]
     Active Substance: CORTISONE\HYDROCORTISONE
     Indication: PAIN
     Dosage: UNK
     Route: 048
     Dates: end: 201510
  2. FLUCONAZOLE. [Concomitant]
     Active Substance: FLUCONAZOLE
     Indication: FUNGAL INFECTION
     Dosage: 150 MG, AS NEEDED
     Dates: start: 2013
  3. VITAMIN B12 [Concomitant]
     Active Substance: CYANOCOBALAMIN
     Indication: VITAMIN B12 DEFICIENCY
     Dosage: ONE INJECTION ONCE A MONTH
     Dates: start: 1984
  4. BACLOFEN. [Suspect]
     Active Substance: BACLOFEN
     Indication: PAIN
     Dosage: 10 MG, 3X/DAY
  5. PREDNISONE EPIDURAL INJECTION [Suspect]
     Active Substance: PREDNISONE
     Indication: PAIN
     Dosage: UNK
     Dates: end: 201510
  6. ATARAX [Concomitant]
     Active Substance: HYDROXYZINE\HYDROXYZINE HYDROCHLORIDE
     Indication: ANTIALLERGIC THERAPY
     Dosage: 25 MG, 3X/DAY
     Dates: start: 2006
  7. GABAPENTIN. [Suspect]
     Active Substance: GABAPENTIN
     Indication: PAIN
     Dosage: 600 MG, 3X/DAY
     Dates: start: 2014
  8. ROXICODONE [Suspect]
     Active Substance: OXYCODONE HYDROCHLORIDE
     Indication: PAIN
     Dosage: 1-2 TABLETS MAXIMUM 8 DAILY
     Dates: start: 2014
  9. PAROXETINE [Concomitant]
     Active Substance: PAROXETINE\PAROXETINE HYDROCHLORIDE
     Indication: DEPRESSION
     Dosage: 10 MG, 2X/DAY
  10. OMEPRAZOLE. [Concomitant]
     Active Substance: OMEPRAZOLE
     Indication: ABDOMINAL DISCOMFORT
     Dosage: 40 MG, 2X/DAY
     Dates: start: 201406
  11. ATENOLOL. [Concomitant]
     Active Substance: ATENOLOL
     Indication: ATRIAL TACHYCARDIA
     Dosage: 25 MG, 1X/DAY
     Dates: start: 2005
  12. SYNTHROID [Concomitant]
     Active Substance: LEVOTHYROXINE SODIUM
     Dosage: 100 MCG, ONE TIME A DAY IN THE MORNING

REACTIONS (8)
  - Condition aggravated [Not Recovered/Not Resolved]
  - Drug ineffective [Not Recovered/Not Resolved]
  - Dyspepsia [Recovered/Resolved]
  - Spinal operation [Recovered/Resolved with Sequelae]
  - Myocardial infarction [Recovered/Resolved]
  - Fungal infection [Recovered/Resolved]
  - Abdominal pain upper [Recovered/Resolved]
  - Oesophageal pain [Recovered/Resolved]

NARRATIVE: CASE EVENT DATE: 2014
